FAERS Safety Report 13048196 (Version 4)
Quarter: 2017Q1

REPORT INFORMATION
  Report Type: Report from Study
  Country: IN (occurrence: IN)
  Receive Date: 20161220
  Receipt Date: 20170306
  Transmission Date: 20170428
  Serious: Yes (Life-Threatening, Hospitalization, Other)
  Sender: FDA-Public Use
  Company Number: IN-GILEAD-2016-0249174

PATIENT
  Age: 59 Year
  Sex: Female
  Weight: 65 kg

DRUGS (11)
  1. DACLATASVIR. [Suspect]
     Active Substance: DACLATASVIR
     Indication: CHRONIC HEPATITIS C
     Dosage: 60 MG, QD
     Route: 048
     Dates: start: 20161121
  2. PIPERACILLIN AND TAZOBACTAM [Concomitant]
     Active Substance: PIPERACILLIN SODIUM\TAZOBACTAM SODIUM
     Indication: ANTIBIOTIC THERAPY
     Dosage: UNK
     Dates: start: 20161216
  3. PANTOPRAZOLE [Concomitant]
     Active Substance: PANTOPRAZOLE SODIUM
  4. SOFOSBUVIR [Suspect]
     Active Substance: SOFOSBUVIR
     Indication: CHRONIC HEPATITIS C
     Dosage: 400 MG, QD
     Route: 048
     Dates: start: 20161121
  5. THYRONORM [Concomitant]
     Active Substance: LEVOTHYROXINE
     Indication: HYPOTHYROIDISM
     Dosage: 100 UG, UNK
     Route: 065
     Dates: start: 20161114
  6. METRONIDAZOLE. [Concomitant]
     Active Substance: METRONIDAZOLE
     Indication: ANTIBIOTIC THERAPY
     Dosage: UNK UNKNOWN, UNK
     Route: 065
     Dates: start: 20161216
  7. TELMISARTAN. [Concomitant]
     Active Substance: TELMISARTAN
     Indication: HYPERTENSION
     Dosage: 40 MG, QD
     Route: 065
  8. LASILACTONE [Concomitant]
     Active Substance: FUROSEMIDE\SPIRONOLACTONE
  9. MVBC [Concomitant]
     Indication: HAEMATEMESIS
     Dosage: UNK UNKNOWN, UNK
     Route: 065
     Dates: start: 20161114
  10. FERROUS SULFATE. [Concomitant]
     Active Substance: FERROUS SULFATE
     Indication: HAEMATEMESIS
     Dosage: UNK UNKNOWN, UNK
     Route: 065
     Dates: start: 20161114
  11. CIPLAR [Concomitant]

REACTIONS (5)
  - Cardiac failure congestive [Recovered/Resolved]
  - Melaena [Not Recovered/Not Resolved]
  - Myocardial ischaemia [Recovered/Resolved]
  - Gastroenteritis [Not Recovered/Not Resolved]
  - Hepatic encephalopathy [Recovered/Resolved]

NARRATIVE: CASE EVENT DATE: 20161214
